FAERS Safety Report 12431780 (Version 1)
Quarter: 2016Q2

REPORT INFORMATION
  Report Type: Spontaneous
  Country: GB (occurrence: None)
  Receive Date: 20160602
  Receipt Date: 20160602
  Transmission Date: 20160815
  Serious: No
  Sender: FDA-Public Use
  Company Number: None

PATIENT
  Sex: Female
  Weight: 61.24 kg

DRUGS (1)
  1. NEXPLANON [Suspect]
     Active Substance: ETONOGESTREL
     Dates: start: 20160218

REACTIONS (7)
  - Abdominal pain lower [None]
  - Weight increased [None]
  - Insomnia [None]
  - Abdominal distension [None]
  - Headache [None]
  - Fatigue [None]
  - Malaise [None]
